FAERS Safety Report 12986766 (Version 1)
Quarter: 2016Q4

REPORT INFORMATION
  Report Type: Spontaneous
  Country: US (occurrence: US)
  Receive Date: 20161130
  Receipt Date: 20161130
  Transmission Date: 20170207
  Serious: No
  Sender: FDA-Public Use
  Company Number: US-APOTEX-2016AP006851

PATIENT
  Age: 62 Year
  Sex: Female

DRUGS (6)
  1. CLONAZEPAM TABLETS USP [Suspect]
     Active Substance: CLONAZEPAM
     Dosage: 2 MG, BID
     Route: 048
  2. CLONAZEPAM TABLETS USP [Suspect]
     Active Substance: CLONAZEPAM
     Indication: TARDIVE DYSKINESIA
     Dosage: 1 MG, Q.H.S.
     Route: 048
  3. PERPHENAZINE. [Concomitant]
     Active Substance: PERPHENAZINE
     Indication: SCHIZOPHRENIA
     Dosage: 2 MG, BID
     Route: 048
  4. CLONAZEPAM TABLETS USP [Suspect]
     Active Substance: CLONAZEPAM
     Dosage: 0.5 MG, EVERY THIRD DAY
     Route: 048
  5. CLONAZEPAM TABLETS USP [Suspect]
     Active Substance: CLONAZEPAM
     Dosage: INCREASED BY 1MG ON ALTERNATE DAY UNTIL TOTAL DOSE OF 4 MG
     Route: 048
  6. CLONAZEPAM TABLETS USP [Suspect]
     Active Substance: CLONAZEPAM
     Dosage: 3 MG, Q.H.S.
     Route: 048

REACTIONS (3)
  - Vision blurred [Recovering/Resolving]
  - Somnolence [Recovering/Resolving]
  - Product use issue [Unknown]
